FAERS Safety Report 9540493 (Version 1)
Quarter: 2013Q3

REPORT INFORMATION
  Report Type: Spontaneous
  Country: JP (occurrence: JP)
  Receive Date: 20130920
  Receipt Date: 20130920
  Transmission Date: 20140515
  Serious: Yes (Other)
  Sender: FDA-Public Use
  Company Number: JP-PFIZER INC-2013269910

PATIENT
  Age: 41 Year
  Sex: Female

DRUGS (2)
  1. CELECOX [Suspect]
     Indication: BACK PAIN
     Dosage: 100 MG, 4X/DAY
     Route: 048
  2. MECOBALAMIN [Concomitant]
     Dosage: UNK

REACTIONS (2)
  - Intentional drug misuse [Unknown]
  - Shock [Recovered/Resolved]
